FAERS Safety Report 16842617 (Version 2)
Quarter: 2019Q4

REPORT INFORMATION
  Report Type: Report from Study
  Country: DE (occurrence: DE)
  Receive Date: 20190924
  Receipt Date: 20191003
  Transmission Date: 20200122
  Serious: Yes (Hospitalization)
  Sender: FDA-Public Use
  Company Number: DE-ROCHE-2413617

PATIENT
  Age: 68 Year
  Sex: Male
  Weight: 80 kg

DRUGS (5)
  1. COBIMETINIB. [Suspect]
     Active Substance: COBIMETINIB
     Dosage: ON 06/SEP/2019, PATIENT RECEIVED LAST DOSE OF VEMURAFENIB PRIOR TO EVENT.
     Route: 048
     Dates: start: 20190920
  2. PANTOPRAZOLE [Concomitant]
     Active Substance: PANTOPRAZOLE
     Route: 065
     Dates: start: 20190906, end: 20190917
  3. VEMURAFENIB. [Suspect]
     Active Substance: VEMURAFENIB
     Dosage: ON 06/SEP/2019, PATIENT RECEIVED LAST DOSE OF VEMURAFENIB PRIOR TO EVENT.
     Route: 048
     Dates: start: 20190917
  4. COBIMETINIB. [Suspect]
     Active Substance: COBIMETINIB
     Indication: MALIGNANT MELANOMA
     Dosage: ON 06/SEP/2019, PATIENT RECEIVED LAST DOSE OF VEMURAFENIB PRIOR TO EVENT.
     Route: 048
     Dates: start: 20190823
  5. VEMURAFENIB. [Suspect]
     Active Substance: VEMURAFENIB
     Indication: MALIGNANT MELANOMA
     Dosage: ON 06/SEP/2019, PATIENT RECEIVED LAST DOSE OF VEMURAFENIB PRIOR TO EVENT.
     Route: 048
     Dates: start: 20190823

REACTIONS (1)
  - Blood creatine phosphokinase increased [Recovered/Resolved]

NARRATIVE: CASE EVENT DATE: 20190906
